FAERS Safety Report 8990120 (Version 1)
Quarter: 2012Q4

REPORT INFORMATION
  Report Type: 
  Country: PT (occurrence: PT)
  Receive Date: 20121228
  Receipt Date: 20121228
  Transmission Date: 20130627
  Serious: Yes (Other)
  Sender: FDA-Public Use
  Company Number: PT-B.I. PHARMACEUTICALS,INC./RIDGEFIELD-2012-BI-04256PO

PATIENT
  Age: 76 Year
  Sex: Male

DRUGS (3)
  1. PRADAXA [Suspect]
     Indication: ATRIAL FIBRILLATION
     Dosage: 220 mg
     Dates: start: 20121121, end: 20121218
  2. BETA-BLOCKER [Concomitant]
     Dates: start: 20121121
  3. DIGITALIC [Concomitant]
     Dates: start: 20121121

REACTIONS (1)
  - Atrial thrombosis [Unknown]
